FAERS Safety Report 16085436 (Version 1)
Quarter: 2019Q1

REPORT INFORMATION
  Report Type: Spontaneous
  Country: US (occurrence: US)
  Receive Date: 20190318
  Receipt Date: 20190318
  Transmission Date: 20190418
  Serious: No
  Sender: FDA-Public Use
  Company Number: US-ELI_LILLY_AND_COMPANY-US201903006647

PATIENT
  Sex: Male

DRUGS (3)
  1. BASAGLAR [Suspect]
     Active Substance: INSULIN GLARGINE
     Dosage: 16 IU, DAILY
     Route: 058
  2. BASAGLAR [Suspect]
     Active Substance: INSULIN GLARGINE
     Indication: TYPE 2 DIABETES MELLITUS
     Dosage: 10 IU, DAILY
     Route: 058
     Dates: start: 20190225
  3. BASAGLAR [Suspect]
     Active Substance: INSULIN GLARGINE
     Dosage: 12 IU, DAILY
     Route: 058

REACTIONS (1)
  - Blood glucose increased [Unknown]
